FAERS Safety Report 8588361-3 (Version None)
Quarter: 2012Q3

REPORT INFORMATION
  Report Type: 
  Country: None (occurrence: None)
  Receive Date: 20120813
  Receipt Date: 20120801
  Transmission Date: 20120928
  Serious: Yes (Hospitalization)
  Sender: FDA-Public Use
  Company Number: US-BAYER-2012-070400

PATIENT
  Age: 47 Year
  Sex: Female

DRUGS (8)
  1. YASMIN [Suspect]
     Dosage: UNK
     Dates: start: 20070301, end: 20120301
  2. INSULIN [Concomitant]
  3. NORVASC [Concomitant]
     Dosage: 2.5 MG, HS
     Route: 048
  4. PROCRIT [Concomitant]
     Dosage: 40000 U, UNK
     Route: 058
     Dates: end: 20120309
  5. ACE INHIBITOR NOS [Concomitant]
  6. LISINOPRIL [Concomitant]
     Dosage: 10 MG, DAILY
     Route: 048
  7. DROSPIRENONE AND ETHINYL ESTRADIOL [Suspect]
     Dosage: UNK
     Dates: start: 20070301, end: 20120301
  8. UNCODEABLE ^UNCLASSIFIABLE^ [Concomitant]
     Dosage: 2 UNITS DAILY
     Route: 058

REACTIONS (6)
  - DEEP VEIN THROMBOSIS [None]
  - INJURY [None]
  - GENERAL PHYSICAL HEALTH DETERIORATION [None]
  - ANXIETY [None]
  - PAIN [None]
  - EMOTIONAL DISTRESS [None]
